FAERS Safety Report 9440936 (Version 1)
Quarter: 2013Q3

REPORT INFORMATION
  Report Type: Spontaneous
  Country: MX (occurrence: MX)
  Receive Date: 20130805
  Receipt Date: 20130805
  Transmission Date: 20140515
  Serious: Yes (Other)
  Sender: FDA-Public Use
  Company Number: PHHY2013MX083289

PATIENT
  Age: 90 Year
  Sex: Female

DRUGS (10)
  1. EXFORGE HCT [Suspect]
     Indication: HYPERTENSION
     Dosage: 1 DF (320MG VALS/ 10MG AMLO/ 25MG HCTZ), DAILY
     Route: 048
     Dates: start: 201101, end: 201307
  2. EXFORGE HCT [Interacting]
     Dosage: 1 DF, (160MG VALS/ 5 MG AMLO/ 12.5MG HCTZ), DAILY
     Route: 048
     Dates: start: 201307
  3. COMBIVENT [Interacting]
     Dosage: UNK UKN, UNK
  4. SPIRIVA [Concomitant]
     Dosage: 1 UKN, DAILY
  5. ASPIRIN PROTECT [Concomitant]
     Dosage: 1 UKN, DAILY
  6. RANITIDINE [Concomitant]
     Dosage: 2 UKN, DAILY
  7. MICCIL [Concomitant]
     Dosage: 1 UKN, DAILY
  8. ATRAVEN [Concomitant]
     Dosage: 3 UKN, DAILY
  9. CEFTRIAXONE [Concomitant]
     Dosage: 1 UKN, DAILY
  10. RANITIDINE HYDROCHLORIDE [Concomitant]
     Dosage: 2 UKN, DAILY

REACTIONS (5)
  - Lung disorder [Not Recovered/Not Resolved]
  - Pulmonary oedema [Not Recovered/Not Resolved]
  - Dyspnoea [Not Recovered/Not Resolved]
  - Influenza [Not Recovered/Not Resolved]
  - Hypotension [Not Recovered/Not Resolved]
